FAERS Safety Report 18878018 (Version 1)
Quarter: 2021Q1

REPORT INFORMATION
  Report Type: Spontaneous
  Country: US (occurrence: US)
  Receive Date: 20210211
  Receipt Date: 20210211
  Transmission Date: 20210420
  Serious: Yes (Other)
  Sender: FDA-Public Use
  Company Number: US-GLAXOSMITHKLINE-US2021GSK037108

PATIENT
  Sex: Female

DRUGS (5)
  1. RANITIDINE. [Suspect]
     Active Substance: RANITIDINE
     Indication: INTESTINAL ULCER
     Dosage: 300 MG, QD
     Route: 065
     Dates: start: 199001, end: 202002
  2. RANITIDINE. [Suspect]
     Active Substance: RANITIDINE
     Indication: INTESTINAL ULCER
     Dosage: 300 MG, QD
     Route: 065
     Dates: start: 199001, end: 202002
  3. RANITIDINE CAPSULE [Suspect]
     Active Substance: RANITIDINE
     Indication: INTESTINAL ULCER
     Dosage: 300 MG, QD
     Route: 065
     Dates: start: 199001, end: 202002
  4. RANITIDINE HYDROCHLORIDE. [Concomitant]
     Active Substance: RANITIDINE HYDROCHLORIDE
     Indication: INTESTINAL ULCER
     Dosage: UNK, QD
     Route: 065
     Dates: start: 199001, end: 200002
  5. RANITIDINE. [Suspect]
     Active Substance: RANITIDINE
     Indication: INTESTINAL ULCER
     Dosage: 300 MG, QD
     Route: 065
     Dates: start: 199001, end: 202002

REACTIONS (1)
  - Breast cancer [Unknown]
